FAERS Safety Report 10146690 (Version 1)
Quarter: 2014Q2

REPORT INFORMATION
  Report Type: Spontaneous
  Country: US (occurrence: US)
  Receive Date: 20140501
  Receipt Date: 20140501
  Transmission Date: 20141212
  Serious: No
  Sender: FDA-Public Use
  Company Number: US-PFIZER INC-2014119097

PATIENT
  Age: 53 Year
  Sex: Female

DRUGS (3)
  1. PRISTIQ [Suspect]
     Dosage: 50 MG, UNK
     Dates: end: 201404
  2. LITHIUM [Concomitant]
     Dosage: UNK
  3. CYMBALTA [Concomitant]
     Dosage: UNK

REACTIONS (2)
  - Anxiety [Unknown]
  - Mood swings [Unknown]
